FAERS Safety Report 20646751 (Version 2)
Quarter: 2022Q2

REPORT INFORMATION
  Report Type: Spontaneous
  Country: US (occurrence: US)
  Receive Date: 20220329
  Receipt Date: 20220412
  Transmission Date: 20220721
  Serious: Yes (Hospitalization, Other)
  Sender: FDA-Public Use
  Company Number: NL-ALKEM LABORATORIES LIMITED-NL-ALKEM-2022-02467

PATIENT
  Age: 37 Year
  Sex: Male

DRUGS (2)
  1. PREGABALIN [Suspect]
     Active Substance: PREGABALIN
     Indication: Product used for unknown indication
     Dosage: 4000 MILLIGRAM
     Route: 065
  2. PREGABALIN [Suspect]
     Active Substance: PREGABALIN
     Dosage: 200 MILLIGRAM, 20 TABLETS
     Route: 065

REACTIONS (5)
  - Seizure [Unknown]
  - Substance abuse [Unknown]
  - Somnolence [Unknown]
  - Overdose [Unknown]
  - Urinary incontinence [Unknown]
